FAERS Safety Report 7101618-8 (Version None)
Quarter: 2010Q4

REPORT INFORMATION
  Report Type: 
  Country: None (occurrence: None)
  Receive Date: 20101115
  Receipt Date: 20101109
  Transmission Date: 20110411
  Serious: Yes (Hospitalization)
  Sender: FDA-Public Use
  Company Number: US-BAYER-201032575NA

PATIENT
  Age: 21 Year
  Sex: Female
  Weight: 42 kg

DRUGS (2)
  1. MIRENA [Suspect]
     Indication: CONTRACEPTION
     Dosage: FREQUENCY: CONTINUOUS
     Route: 015
     Dates: start: 20100720, end: 20100721
  2. MIRENA [Suspect]
     Dosage: FREQUENCY: CONTINUOUS
     Route: 015
     Dates: start: 20100728

REACTIONS (3)
  - ABDOMINAL PAIN [None]
  - DEVICE DIFFICULT TO USE [None]
  - UTERINE PERFORATION [None]
